FAERS Safety Report 6694383-X (Version None)
Quarter: 2010Q2

REPORT INFORMATION
  Report Type: 
  Country: None (occurrence: None)
  Receive Date: 20100423
  Receipt Date: 20100416
  Transmission Date: 20101027
  Serious: Yes (Life-Threatening, Hospitalization)
  Sender: FDA-Public Use
  Company Number: TR-NOVOPROD-307260

PATIENT
  Age: 29 Year
  Sex: Male

DRUGS (3)
  1. INSULATARD HM PENFILL [Suspect]
     Indication: OFF LABEL USE
     Dosage: 600 U, SINGLE
     Route: 058
  2. MIXTARD 30HM [Suspect]
     Indication: OFF LABEL USE
     Dosage: 1500 U, SINGLE
     Route: 058
  3. INSULIN [Suspect]
     Indication: OFF LABEL USE
     Dosage: 1500 U, SINGLE

REACTIONS (4)
  - HEPATOTOXICITY [None]
  - HYPOGLYCAEMIC UNCONSCIOUSNESS [None]
  - INTENTIONAL DRUG MISUSE [None]
  - SUICIDE ATTEMPT [None]
